FAERS Safety Report 7580772-8 (Version None)
Quarter: 2011Q2

REPORT INFORMATION
  Report Type: 
  Country: None (occurrence: None)
  Receive Date: 20110629
  Receipt Date: 20110119
  Transmission Date: 20111010
  Serious: Yes (Hospitalization, Other)
  Sender: FDA-Public Use
  Company Number: US-BAYER-201040663NA

PATIENT
  Age: 24 Year
  Sex: Female
  Weight: 99.773 kg

DRUGS (9)
  1. YAZ [Suspect]
     Indication: MENSTRUATION IRREGULAR
  2. YAZ [Suspect]
     Indication: CONTRACEPTION
     Dosage: UNK
     Route: 048
     Dates: start: 20060401, end: 20080101
  3. NAPROXEN [Concomitant]
  4. YAZ [Suspect]
     Indication: PREMENSTRUAL SYNDROME
  5. YASMIN [Suspect]
     Indication: CONTRACEPTION
     Dosage: UNK
     Route: 048
     Dates: start: 20060401, end: 20080101
  6. VICODIN [Concomitant]
     Indication: PAIN
  7. YASMIN [Suspect]
     Indication: MENSTRUATION IRREGULAR
  8. YASMIN [Suspect]
     Indication: PREMENSTRUAL SYNDROME
  9. NSAID'S [Concomitant]

REACTIONS (4)
  - GALLBLADDER DISORDER [None]
  - CHOLECYSTITIS CHRONIC [None]
  - PANCREATITIS [None]
  - MENTAL DISORDER [None]
